FAERS Safety Report 14368863 (Version 1)
Quarter: 2018Q1

REPORT INFORMATION
  Report Type: Other
  Country: US (occurrence: US)
  Receive Date: 20180109
  Receipt Date: 20180109
  Transmission Date: 20180509
  Serious: Yes (Hospitalization, Other)
  Sender: FDA-Public Use
  Company Number: US-THE PROACTIV LLC-2039769

PATIENT
  Age: 54 Year
  Sex: Female

DRUGS (12)
  1. PROACTIV SKIN LIGHTENING [Suspect]
     Active Substance: HYDROQUINONE
     Route: 061
     Dates: start: 2017, end: 201712
  2. NEXIUM [Concomitant]
     Active Substance: ESOMEPRAZOLE MAGNESIUM
  3. LIPITOR [Concomitant]
     Active Substance: ATORVASTATIN CALCIUM
  4. ZINC. [Concomitant]
     Active Substance: ZINC
  5. VITAMIN OMEGA 3 [Concomitant]
  6. CALCIUM SUPPLEMENT [Concomitant]
     Active Substance: CALCIUM
  7. ASPIRIN. [Concomitant]
     Active Substance: ASPIRIN
  8. AMBIEN [Concomitant]
     Active Substance: ZOLPIDEM TARTRATE
  9. VITAMIN D3 [Concomitant]
     Active Substance: CHOLECALCIFEROL
  10. VITAMIN E [Concomitant]
     Active Substance: .ALPHA.-TOCOPHEROL
  11. PROACTIVPLUS SKIN SMOOTHING EXFOLIATOR [Suspect]
     Active Substance: BENZOYL PEROXIDE
     Route: 061
     Dates: start: 2017, end: 201712
  12. PROACTIV PLUS PORE TARGETING TREATMENT [Suspect]
     Active Substance: BENZOYL PEROXIDE
     Route: 061
     Dates: start: 2017, end: 201712

REACTIONS (4)
  - Rash [Recovering/Resolving]
  - Swelling face [Recovering/Resolving]
  - Burning sensation [Recovering/Resolving]
  - Bacteraemia [Recovering/Resolving]

NARRATIVE: CASE EVENT DATE: 20171123
